FAERS Safety Report 4945136-1 (Version None)
Quarter: 2006Q1

REPORT INFORMATION
  Report Type: 
  Country: None (occurrence: None)
  Receive Date: 20060117
  Receipt Date: 20041206
  Transmission Date: 20060701
  Serious: Yes (Other)
  Sender: FDA-Public Use
  Company Number: A03200404122

PATIENT
  Age: 56 Year
  Sex: Male
  Weight: 111.5849 kg

DRUGS (1)
  1. PLAVIX [Suspect]
     Indication: ARTERIAL DISORDER
     Dosage: ORAL
     Route: 048

REACTIONS (3)
  - ANGINA PECTORIS [None]
  - FEELING ABNORMAL [None]
  - HAEMORRHAGE [None]
